FAERS Safety Report 15305746 (Version 2)
Quarter: 2018Q4

REPORT INFORMATION
  Report Type: Report from Study
  Country: CL (occurrence: CL)
  Receive Date: 20180822
  Receipt Date: 20181218
  Transmission Date: 20190204
  Serious: Yes (Hospitalization, Other)
  Sender: FDA-Public Use
  Company Number: CL-EMD SERONO-E2B_90002841

PATIENT
  Sex: Female

DRUGS (1)
  1. REBIF [Suspect]
     Active Substance: INTERFERON BETA-1A
     Indication: MULTIPLE SCLEROSIS
     Route: 058
     Dates: start: 20130910, end: 20180702

REACTIONS (18)
  - Renal disorder [Recovered/Resolved]
  - Blood pressure increased [Recovered/Resolved]
  - Nausea [Recovering/Resolving]
  - Cerebrovascular accident [Recovered/Resolved]
  - Headache [Unknown]
  - Hypertensive emergency [Recovering/Resolving]
  - Urinary tract infection [Recovered/Resolved]
  - Adverse event [Recovering/Resolving]
  - Hemiparesis [Recovered/Resolved]
  - Urinary sediment abnormal [Recovering/Resolving]
  - Blood test abnormal [Recovering/Resolving]
  - Thrombocytopenia [Recovered/Resolved]
  - Glomerulonephritis [Recovering/Resolving]
  - Nuclear magnetic resonance imaging abnormal [Recovered/Resolved]
  - Vision blurred [Recovering/Resolving]
  - Malaise [Unknown]
  - Emotional disorder [Unknown]
  - Anaemia [Recovered/Resolved]

NARRATIVE: CASE EVENT DATE: 2013
